FAERS Safety Report 5331922-5 (Version None)
Quarter: 2007Q2

REPORT INFORMATION
  Report Type: 
  Country: None (occurrence: None)
  Receive Date: 20070518
  Receipt Date: 20070502
  Transmission Date: 20071010
  Serious: Yes (Other)
  Sender: FDA-Public Use
  Company Number: 8023584

PATIENT
  Age: 25 Year
  Sex: Female

DRUGS (7)
  1. KEPPRA [Suspect]
     Indication: CONVULSION
     Dosage: 2250 MG/D
     Dates: start: 20060620
  2. NORTRIPTYLINE HCL [Concomitant]
  3. REPLAX [Concomitant]
  4. ZOFRAN [Concomitant]
  5. PRN [Concomitant]
  6. TYLENOL W/ CODEINE NO. 3 [Concomitant]
  7. NUBAIN [Concomitant]

REACTIONS (5)
  - ABDOMINAL PAIN UPPER [None]
  - DRUG EXPOSURE DURING PREGNANCY [None]
  - NAUSEA [None]
  - PREGNANCY [None]
  - PREMATURE LABOUR [None]
